FAERS Safety Report 10174027 (Version 1)
Quarter: 2014Q2

REPORT INFORMATION
  Report Type: Report from Study
  Country: CA (occurrence: CA)
  Receive Date: 20140515
  Receipt Date: 20140515
  Transmission Date: 20141212
  Serious: Yes (Other)
  Sender: FDA-Public Use
  Company Number: CA-ABBVIE-14P-028-1236051-00

PATIENT
  Age: 44 Year
  Sex: Female

DRUGS (2)
  1. HUMIRA [Suspect]
     Indication: CROHN^S DISEASE
     Route: 058
     Dates: start: 20080319, end: 201209
  2. HUMIRA [Suspect]
     Route: 058
     Dates: start: 2014

REACTIONS (2)
  - Fistula [Recovered/Resolved]
  - Nasopharyngitis [Not Recovered/Not Resolved]
